FAERS Safety Report 25454405 (Version 1)
Quarter: 2025Q2

REPORT INFORMATION
  Report Type: Spontaneous
  Country: BR (occurrence: BR)
  Receive Date: 20250619
  Receipt Date: 20250619
  Transmission Date: 20250716
  Serious: Yes (Hospitalization, Other)
  Sender: EMD SERONO INC
  Company Number: BR-Merck Healthcare KGaA-2025029735

PATIENT
  Sex: Female

DRUGS (1)
  1. LEVOTHYROXINE SODIUM [Suspect]
     Active Substance: LEVOTHYROXINE SODIUM
     Indication: Hypothyroidism
     Dosage: VALIDITY: JUL-2026?MANUFACTURE: AUG-2024?1 TABLET IN THE MORNING

REACTIONS (11)
  - Deafness unilateral [Unknown]
  - Fall [Unknown]
  - Upper limb fracture [Unknown]
  - Hysterectomy [Unknown]
  - Urinary tract infection [Unknown]
  - Dizziness [Not Recovered/Not Resolved]
  - Balance disorder [Not Recovered/Not Resolved]
  - Swelling [Not Recovered/Not Resolved]
  - Influenza [Recovered/Resolved]
  - Cough [Not Recovered/Not Resolved]
  - Anaemia [Unknown]
